FAERS Safety Report 22172813 (Version 3)
Quarter: 2023Q2

REPORT INFORMATION
  Report Type: Spontaneous
  Country: US (occurrence: US)
  Receive Date: 20230404
  Receipt Date: 20230526
  Transmission Date: 20230722
  Serious: No
  Sender: FDA-Public Use
  Company Number: US-PFIZER INC-PV202300061660

PATIENT
  Age: 82 Year
  Sex: Female
  Weight: 85.261 kg

DRUGS (4)
  1. IBRANCE [Suspect]
     Active Substance: PALBOCICLIB
     Indication: Breast cancer stage IV
     Dosage: 100 MG, 2X/DAY
     Dates: start: 201705, end: 202210
  2. COVID-19 VACCINE [Concomitant]
     Dosage: UNK
     Dates: start: 202104, end: 202104
  3. COVID-19 VACCINE [Concomitant]
     Dosage: BOOSTER
     Dates: start: 202111, end: 202111
  4. PAXLOVID [Concomitant]
     Active Substance: NIRMATRELVIR\RITONAVIR
     Dosage: UNK
     Dates: start: 202108

REACTIONS (4)
  - Tumour marker increased [Unknown]
  - Neoplasm progression [Not Recovered/Not Resolved]
  - Off label use [Unknown]
  - COVID-19 [Unknown]
